FAERS Safety Report 10452389 (Version 1)
Quarter: 2014Q3

REPORT INFORMATION
  Report Type: Spontaneous
  Country: US (occurrence: None)
  Receive Date: 20140912
  Receipt Date: 20140912
  Transmission Date: 20150326
  Serious: No
  Sender: FDA-Public Use
  Company Number: None

PATIENT

DRUGS (2)
  1. TRAMADOL HCL [Suspect]
     Active Substance: TRAMADOL HYDROCHLORIDE
     Dosage: TABLET, ORAL, 50MG BOTTLE, 100 TABLETS
     Route: 048
  2. TRAZODONE HYDROCHLORIDE. [Suspect]
     Active Substance: TRAZODONE HYDROCHLORIDE
     Dosage: TABLET, ORAL, 50MG BOTTLE, 100 TABLETS
     Route: 048

REACTIONS (2)
  - Intercepted drug dispensing error [None]
  - Circumstance or information capable of leading to medication error [None]
